FAERS Safety Report 16039918 (Version 2)
Quarter: 2019Q1

REPORT INFORMATION
  Report Type: Spontaneous
  Country: US (occurrence: US)
  Receive Date: 20190306
  Receipt Date: 20190308
  Transmission Date: 20190418
  Serious: No
  Sender: FDA-Public Use
  Company Number: US-BAYER-2019-045036

PATIENT
  Age: 86 Year
  Sex: Male
  Weight: 79 kg

DRUGS (3)
  1. WARFARIN [Concomitant]
     Active Substance: WARFARIN
  2. MIRALAX [Suspect]
     Active Substance: POLYETHYLENE GLYCOL 3350
     Indication: GASTROINTESTINAL DISORDER
     Dosage: UNK
     Dates: start: 2017
  3. MIRALAX [Suspect]
     Active Substance: POLYETHYLENE GLYCOL 3350
     Indication: GASTROINTESTINAL DISORDER
     Dosage: UNK
     Route: 048
     Dates: start: 20190227, end: 20190228

REACTIONS (3)
  - Poor quality product administered [Unknown]
  - Product quality issue [Unknown]
  - Product solubility abnormal [None]

NARRATIVE: CASE EVENT DATE: 20190227
